FAERS Safety Report 7097135-4 (Version None)
Quarter: 2010Q4

REPORT INFORMATION
  Report Type: 
  Country: None (occurrence: None)
  Receive Date: 20101111
  Receipt Date: 20101101
  Transmission Date: 20110411
  Serious: Yes (Other)
  Sender: FDA-Public Use
  Company Number: US-PURDUE-USA-2010-0052850

PATIENT
  Sex: Male

DRUGS (2)
  1. OXYCONTIN [Suspect]
     Indication: PRODUCT USED FOR UNKNOWN INDICATION
     Dosage: UNK
     Dates: start: 19960101
  2. ADDERALL 10 [Concomitant]
     Indication: PRODUCT USED FOR UNKNOWN INDICATION
     Dosage: UNK

REACTIONS (5)
  - BRAIN INJURY [None]
  - EXPOSURE TO TOXIC AGENT [None]
  - FALL [None]
  - INTENTIONAL DRUG MISUSE [None]
  - UNEVALUABLE EVENT [None]
